FAERS Safety Report 25341363 (Version 1)
Quarter: 2025Q2

REPORT INFORMATION
  Report Type: Spontaneous
  Country: US (occurrence: US)
  Receive Date: 20250521
  Receipt Date: 20250521
  Transmission Date: 20250716
  Serious: No
  Sender: ADVANZ PHARMA
  Company Number: US-SA-2025SA135745

PATIENT

DRUGS (19)
  1. HYDROXYCHLOROQUINE [Suspect]
     Active Substance: HYDROXYCHLOROQUINE
     Indication: Product used for unknown indication
     Route: 065
     Dates: start: 2025, end: 2025
  2. TYVASO [Concomitant]
     Active Substance: TREPROSTINIL
     Indication: Pulmonary arterial hypertension
     Route: 055
  3. METHOCARBAMOL [Concomitant]
     Active Substance: METHOCARBAMOL
  4. MECLIZINE HYDROCHLORIDE [Concomitant]
     Active Substance: MECLIZINE HYDROCHLORIDE
  5. FUROSEMIDE [Concomitant]
     Active Substance: FUROSEMIDE
  6. MINERALS\VITAMINS [Concomitant]
     Active Substance: MINERALS\VITAMINS
  7. CLONAZEPAM [Concomitant]
     Active Substance: CLONAZEPAM
  8. SELENIUM [Concomitant]
     Active Substance: SELENIUM
  9. ALREX [Concomitant]
     Active Substance: LOTEPREDNOL ETABONATE
  10. ALBUTEROL SULFATE [Concomitant]
     Active Substance: ALBUTEROL SULFATE
  11. ALLOPURINOL [Concomitant]
     Active Substance: ALLOPURINOL
  12. POTASSIUM CHLORIDE [Concomitant]
     Active Substance: POTASSIUM CHLORIDE
  13. ELIQUIS [Concomitant]
     Active Substance: APIXABAN
  14. CELEBREX [Concomitant]
     Active Substance: CELECOXIB
  15. PREDNISONE [Concomitant]
     Active Substance: PREDNISONE
  16. OXYGEN [Concomitant]
     Active Substance: OXYGEN
  17. LEVOTHYROXINE SODIUM [Concomitant]
     Active Substance: LEVOTHYROXINE SODIUM
  18. SUMATRIPTAN SUCCINATE [Concomitant]
     Active Substance: SUMATRIPTAN SUCCINATE
  19. REPATHA [Concomitant]
     Active Substance: EVOLOCUMAB

REACTIONS (1)
  - Dyspnoea [Unknown]
